FAERS Safety Report 9935557 (Version 2)
Quarter: 2014Q1

REPORT INFORMATION
  Report Type: Spontaneous
  Country: JP (occurrence: JP)
  Receive Date: 20140228
  Receipt Date: 20140228
  Transmission Date: 20141002
  Serious: Yes (Hospitalization, Other)
  Sender: FDA-Public Use
  Company Number: JP-BAXTER-2013BAX020723

PATIENT
  Sex: Male

DRUGS (3)
  1. DIANEAL-N PD-4 1.5 PD SOLUTION [Suspect]
     Indication: RENAL FAILURE CHRONIC
     Route: 033
     Dates: start: 200712
  2. DIANEAL-N PD-4 1.5 PD SOLUTION [Suspect]
     Route: 033
     Dates: start: 200712
  3. EXTRANEAL PD SOLUTION [Suspect]
     Indication: RENAL FAILURE CHRONIC
     Route: 033
     Dates: start: 200712

REACTIONS (1)
  - Nasopharyngitis [Recovered/Resolved]
